FAERS Safety Report 14962461 (Version 3)
Quarter: 2018Q3

REPORT INFORMATION
  Report Type: Spontaneous
  Country: US (occurrence: US)
  Receive Date: 20180601
  Receipt Date: 20180717
  Transmission Date: 20181010
  Serious: Yes (Other)
  Sender: FDA-Public Use
  Company Number: US-ROCHE-2132358

PATIENT
  Age: 42 Year
  Sex: Female
  Weight: 97.61 kg

DRUGS (9)
  1. PLAQUENIL [Concomitant]
     Active Substance: HYDROXYCHLOROQUINE SULFATE
     Indication: RHEUMATOID ARTHRITIS
  2. NORCO [Concomitant]
     Active Substance: ACETAMINOPHEN\HYDROCODONE BITARTRATE
     Indication: PAIN
  3. RITUXAN [Suspect]
     Active Substance: RITUXIMAB
     Dosage: ONGOING: YES
     Route: 042
  4. RITUXAN [Suspect]
     Active Substance: RITUXIMAB
     Dosage: ONGOING: NO
     Route: 042
     Dates: start: 20180215
  5. PENNSAID [Concomitant]
     Active Substance: DICLOFENAC SODIUM
     Route: 061
  6. PROGESTERONE. [Concomitant]
     Active Substance: PROGESTERONE
     Indication: CONTRACEPTION
  7. RITUXAN [Suspect]
     Active Substance: RITUXIMAB
     Indication: RHEUMATOID ARTHRITIS
     Route: 042
     Dates: start: 20180212
  8. ARAVA [Concomitant]
     Active Substance: LEFLUNOMIDE
     Indication: RHEUMATOID ARTHRITIS
  9. PREDNISONE. [Concomitant]
     Active Substance: PREDNISONE
     Indication: RHEUMATOID ARTHRITIS
     Route: 065
     Dates: start: 201702

REACTIONS (4)
  - Therapeutic response shortened [Unknown]
  - Deep vein thrombosis [Not Recovered/Not Resolved]
  - Rheumatoid arthritis [Unknown]
  - Joint swelling [Unknown]

NARRATIVE: CASE EVENT DATE: 201805
